FAERS Safety Report 13271235 (Version 2)
Quarter: 2017Q1

REPORT INFORMATION
  Report Type: Report from Study
  Country: EG (occurrence: EG)
  Receive Date: 20170226
  Receipt Date: 20170302
  Transmission Date: 20170428
  Serious: Yes (Hospitalization)
  Sender: FDA-Public Use
  Company Number: EG-B.I. PHARMACEUTICALS,INC./RIDGEFIELD-2017-BI-008931

PATIENT
  Age: 54 Year
  Sex: Female
  Weight: 80 kg

DRUGS (12)
  1. PEMETREXED [Suspect]
     Active Substance: PEMETREXED
     Indication: PLEURAL MESOTHELIOMA MALIGNANT
     Route: 042
     Dates: start: 20170209, end: 20170209
  2. FOLIC ACID. [Concomitant]
     Active Substance: FOLIC ACID
     Indication: PRODUCT USED FOR UNKNOWN INDICATION
     Route: 048
     Dates: start: 20170126
  3. VITAMIN B12 [Concomitant]
     Active Substance: CYANOCOBALAMIN
     Indication: PRODUCT USED FOR UNKNOWN INDICATION
     Route: 030
     Dates: start: 20170126
  4. EMEND [Concomitant]
     Active Substance: APREPITANT
     Indication: DRUG THERAPY
     Route: 048
     Dates: start: 20170209, end: 20170211
  5. SOLU CORTIFE [Concomitant]
     Indication: DRUG THERAPY
     Route: 030
     Dates: start: 20170208, end: 20170210
  6. SOLU CORTIFE [Concomitant]
     Indication: LOWER RESPIRATORY TRACT INFECTION
  7. DACTARIN ORAL GEL [Concomitant]
     Indication: MUCOSAL INFLAMMATION
     Route: 048
     Dates: start: 20170204
  8. CONTROLOC [Concomitant]
     Active Substance: PANTOPRAZOLE SODIUM
     Indication: GASTRITIS PROPHYLAXIS
     Dosage: STRENGTH: 40
     Route: 048
     Dates: start: 20170204
  9. BLINDED BIBF 1120 [Suspect]
     Active Substance: NINTEDANIB
     Indication: PLEURAL MESOTHELIOMA MALIGNANT
     Route: 048
     Dates: start: 20170210
  10. CONVENTIN [Concomitant]
     Indication: PAIN
     Route: 048
     Dates: start: 20170204
  11. CISPLATIN. [Suspect]
     Active Substance: CISPLATIN
     Indication: PLEURAL MESOTHELIOMA MALIGNANT
     Route: 042
     Dates: start: 20170209, end: 20170209
  12. ZOFRAN [Concomitant]
     Active Substance: ONDANSETRON HYDROCHLORIDE
     Indication: DRUG THERAPY
     Route: 030
     Dates: start: 20170209, end: 20170221

REACTIONS (6)
  - Lower respiratory tract infection [Not Recovered/Not Resolved]
  - Dehydration [Not Recovered/Not Resolved]
  - Vomiting [Not Recovered/Not Resolved]
  - Depression [Not Recovered/Not Resolved]
  - Mucosal inflammation [Not Recovered/Not Resolved]
  - Decreased appetite [Not Recovered/Not Resolved]

NARRATIVE: CASE EVENT DATE: 20170210
